FAERS Safety Report 10518758 (Version 8)
Quarter: 2018Q1

REPORT INFORMATION
  Report Type: Report from Study
  Country: US (occurrence: US)
  Receive Date: 20141015
  Receipt Date: 20180110
  Transmission Date: 20180508
  Serious: Yes (Other)
  Sender: FDA-Public Use
  Company Number: US-SA-2014SA138461

PATIENT
  Age: 53 Year
  Sex: Female
  Weight: 64.8 kg

DRUGS (12)
  1. KRILL OIL [Concomitant]
     Active Substance: DIETARY SUPPLEMENT
     Indication: CARDIOVASCULAR EVENT PROPHYLAXIS
     Dates: start: 2013
  2. CITRACAL [Concomitant]
     Active Substance: CALCIUM CITRATE
     Indication: PROPHYLAXIS
     Dates: start: 2010
  3. LANSOPRAZOLE. [Concomitant]
     Active Substance: LANSOPRAZOLE
     Indication: BLOOD CHOLESTEROL
     Dates: start: 1990
  4. AUBAGIO [Suspect]
     Active Substance: TERIFLUNOMIDE
     Indication: MULTIPLE SCLEROSIS
     Dosage: STRENGTH-7 MG
     Route: 048
     Dates: start: 20140917
  5. AUBAGIO [Suspect]
     Active Substance: TERIFLUNOMIDE
     Indication: MULTIPLE SCLEROSIS
     Dosage: STRENGTH-14 MG?START DATE- 8 MONTHS AGO
     Route: 048
     Dates: start: 2014
  6. CENTRUM SILVER [Concomitant]
     Active Substance: MINERALS\VITAMINS
     Dates: start: 2010
  7. AUBAGIO [Suspect]
     Active Substance: TERIFLUNOMIDE
     Indication: MULTIPLE SCLEROSIS
     Dosage: STRENGTH-14 MG?START DATE- 8 MONTHS AGO
     Route: 048
     Dates: start: 2014
  8. BIOTIN [Concomitant]
     Active Substance: BIOTIN
  9. LIPITOR [Concomitant]
     Active Substance: ATORVASTATIN CALCIUM
     Indication: BLOOD CHOLESTEROL
     Dates: start: 1988
  10. CLARITIN [Concomitant]
     Active Substance: LORATADINE
  11. VITAMIN D [Concomitant]
     Active Substance: CHOLECALCIFEROL
     Indication: PROPHYLAXIS
     Dates: start: 2013
  12. NIFEDIPINE. [Concomitant]
     Active Substance: NIFEDIPINE

REACTIONS (18)
  - Feeding disorder [Unknown]
  - Loss of consciousness [Unknown]
  - Sleep disorder [Unknown]
  - Nausea [Recovered/Resolved]
  - Rash [Unknown]
  - Unevaluable event [Unknown]
  - Decreased appetite [Recovered/Resolved]
  - Stress [Unknown]
  - Depression [Unknown]
  - Alopecia [Not Recovered/Not Resolved]
  - Weight increased [Not Recovered/Not Resolved]
  - Poor quality sleep [Unknown]
  - Increased appetite [Not Recovered/Not Resolved]
  - Loss of employment [Unknown]
  - Heart rate decreased [Unknown]
  - Asthenia [Not Recovered/Not Resolved]
  - Blood glucose decreased [Unknown]
  - Pruritus [Unknown]

NARRATIVE: CASE EVENT DATE: 201409
